FAERS Safety Report 9548700 (Version 2)
Quarter: 2013Q4

REPORT INFORMATION
  Report Type: Spontaneous
  Country: DE (occurrence: None)
  Receive Date: 20130919
  Receipt Date: 20131018
  Transmission Date: 20140711
  Serious: Yes (Death, Hospitalization)
  Sender: FDA-Public Use
  Company Number: 1309-1152

PATIENT
  Age: 88 Year
  Sex: Male

DRUGS (6)
  1. EYLEA [Suspect]
     Indication: AGE-RELATED MACULAR DEGENERATION
     Route: 031
     Dates: start: 20130528, end: 20130528
  2. ZANIDIP(LERCANIDIPINE HYDROCHLORIDE) [Concomitant]
  3. SOMAC (PANTOPRAZOLE SODIUM) [Concomitant]
  4. ASASANTIN (DIPYRIDAMOLE) [Concomitant]
  5. CRESTOR (ROSUVASTATIN CALCIUM) [Concomitant]
  6. ARATAC(AMIODARONE HYDROCHLORIDE) [Concomitant]

REACTIONS (1)
  - Cerebrovascular accident [None]
